FAERS Safety Report 6921336-6 (Version None)
Quarter: 2010Q3

REPORT INFORMATION
  Report Type: 
  Country: None (occurrence: None)
  Receive Date: 20100805
  Receipt Date: 20100331
  Transmission Date: 20110219
  Serious: No
  Sender: FDA-Public Use
  Company Number: US-001786

PATIENT
  Sex: Male

DRUGS (2)
  1. DEGARELIX (240 MG, 80 MG) [Suspect]
     Indication: PROSTATE CANCER
     Dosage: (240 MG 1X/MONTH SUBCUTANEOUS), (80 MG TOTAL SUBCUTANEOUS)
     Route: 058
     Dates: start: 20100107, end: 20100107
  2. DEGARELIX (240 MG, 80 MG) [Suspect]
     Indication: PROSTATE CANCER
     Dosage: (240 MG 1X/MONTH SUBCUTANEOUS), (80 MG TOTAL SUBCUTANEOUS)
     Route: 058
     Dates: start: 20100211

REACTIONS (2)
  - MUSCULOSKELETAL PAIN [None]
  - PAIN [None]
